FAERS Safety Report 20799234 (Version 1)
Quarter: 2022Q2

REPORT INFORMATION
  Report Type: Report from Study
  Country: ES (occurrence: ES)
  Receive Date: 20220508
  Receipt Date: 20220508
  Transmission Date: 20220721
  Serious: Yes (Hospitalization)
  Sender: FDA-Public Use
  Company Number: None

PATIENT
  Age: 74 Year
  Sex: Female

DRUGS (5)
  1. NAPROXEN [Suspect]
     Active Substance: NAPROXEN
     Dosage: 2 DOSAGE FORMS DAILY; 1 TABLET EVERY 12 HOURS,NAPROXEN (2002A),DURATION 7DAYS
     Route: 048
     Dates: start: 20211029, end: 20211104
  2. LEVOTHYROXINE SODIUM [Concomitant]
     Active Substance: LEVOTHYROXINE SODIUM
     Indication: Hypothyroidism
     Dosage: 1 DOSAGE FORMS DAILY; STRENGTH:88 MICROGRAMS, 1 TABLET EVERY 24 HOURS
     Route: 048
     Dates: start: 201906
  3. VENLAFAXINE HYDROCHLORIDE [Concomitant]
     Active Substance: VENLAFAXINE HYDROCHLORIDE
     Dosage: 1 DOSAGE FORMS DAILY; 1 CAPSULE PER DAY
     Route: 048
     Dates: start: 202002
  4. PANTOPRAZOLE [Concomitant]
     Active Substance: PANTOPRAZOLE
     Dosage: 1 DOSAGE FORMS DAILY; 28 TABLETS, STRENGTH 40MG, 1 TABLET EVERY 24 HOURS
     Route: 048
     Dates: start: 202103
  5. CALCIUM CARBONATE [Concomitant]
     Active Substance: CALCIUM CARBONATE
     Dosage: 1 DOSAGE FORMS DAILY; DURATION 2YEARS, 1 TABLET EVERY 24 HOURS
     Route: 048
     Dates: start: 201908, end: 202202

REACTIONS (2)
  - Erosive duodenitis [Unknown]
  - Gastric ulcer [Unknown]

NARRATIVE: CASE EVENT DATE: 20211103
